FAERS Safety Report 8551011-6 (Version None)
Quarter: 2012Q3

REPORT INFORMATION
  Report Type: 
  Country: None (occurrence: None)
  Receive Date: 20120730
  Receipt Date: 20120720
  Transmission Date: 20120928
  Serious: Yes (Death)
  Sender: FDA-Public Use
  Company Number: VN-BAXTER-2012BAX011216

PATIENT
  Age: 45 Year
  Sex: Male

DRUGS (3)
  1. DIANEAL [Suspect]
     Route: 033
     Dates: start: 20101220, end: 20120716
  2. DIANEAL [Suspect]
     Route: 033
     Dates: start: 20101220, end: 20120716
  3. DIANEAL [Suspect]
     Dates: start: 20101220

REACTIONS (2)
  - DEATH [None]
  - PERITONITIS [None]
